FAERS Safety Report 8836037 (Version 1)
Quarter: 2012Q4

REPORT INFORMATION
  Report Type: 
  Country: US (occurrence: US)
  Receive Date: 20121011
  Receipt Date: 20121011
  Transmission Date: 20130627
  Serious: No
  Sender: FDA-Public Use
  Company Number: US-009507513-1210USA003639

PATIENT
  Sex: Male

DRUGS (2)
  1. JANUMET [Suspect]
     Dosage: 850 mg, UNK
     Route: 048
     Dates: start: 2012, end: 2012
  2. INSULIN [Concomitant]

REACTIONS (1)
  - Diarrhoea [Unknown]
